FAERS Safety Report 7009696-1 (Version None)
Quarter: 2010Q3

REPORT INFORMATION
  Report Type: 
  Country: None (occurrence: None)
  Receive Date: 20100923
  Receipt Date: 20100915
  Transmission Date: 20110219
  Serious: Yes (Hospitalization)
  Sender: FDA-Public Use
  Company Number: JP-PFIZER INC-2010116517

PATIENT
  Age: 81 Year
  Sex: Male

DRUGS (10)
  1. LIPITOR [Suspect]
     Dosage: 10 MG, UNKNOWN/D
     Route: 048
  2. MICARDIS [Concomitant]
     Dosage: UNK
  3. CEFZON [Concomitant]
  4. ASPIRIN [Concomitant]
     Dosage: UNK
     Route: 048
  5. ACINON [Concomitant]
     Dosage: UNK
     Route: 048
  6. ALLOPURINOL [Concomitant]
     Dosage: UNK
     Route: 048
  7. WARFARIN [Concomitant]
     Dosage: UNK
     Route: 048
  8. ITOROL [Concomitant]
     Dosage: UNK
     Route: 048
  9. SIGMART [Concomitant]
     Dosage: UNK
     Route: 048
  10. MUCOSTA [Concomitant]
     Route: 048

REACTIONS (2)
  - CATARACT OPERATION [None]
  - SWEAT DISCOLOURATION [None]
